FAERS Safety Report 9925926 (Version 1)
Quarter: 2014Q1

REPORT INFORMATION
  Report Type: Spontaneous
  Country: BR (occurrence: BR)
  Receive Date: 20140226
  Receipt Date: 20140226
  Transmission Date: 20141002
  Serious: Yes (Other)
  Sender: FDA-Public Use
  Company Number: BR-PFIZER INC-2014053529

PATIENT
  Sex: Female

DRUGS (1)
  1. FRONTAL [Suspect]
     Dosage: UNK

REACTIONS (1)
  - Infarction [Unknown]
